FAERS Safety Report 7880743-8 (Version None)
Quarter: 2011Q4

REPORT INFORMATION
  Report Type: 
  Country: None (occurrence: None)
  Receive Date: 20111101
  Receipt Date: 20111019
  Transmission Date: 20120403
  Serious: Yes (Hospitalization, Other)
  Sender: FDA-Public Use
  Company Number: CA-ELI_LILLY_AND_COMPANY-CA201110004922

PATIENT
  Sex: Female

DRUGS (7)
  1. ELAVIL [Concomitant]
  2. WELLBUTRIN [Concomitant]
  3. ZYPREXA [Suspect]
     Indication: DEPRESSION
     Dosage: 2.5 MG, EACH EVENING
     Dates: start: 20000223
  4. ZYPREXA [Suspect]
     Dosage: 5 MG, UNK
  5. OXAZEPAM [Concomitant]
  6. CITALOPRAM HYDROBROMIDE [Concomitant]
  7. SERZONE [Concomitant]

REACTIONS (13)
  - LEUKOPENIA [None]
  - PANCREATIC INSUFFICIENCY [None]
  - ABDOMINAL PAIN [None]
  - DIABETIC GASTROPARESIS [None]
  - HYPERTENSION [None]
  - SLEEP APNOEA SYNDROME [None]
  - THROMBOCYTOPENIA [None]
  - DIABETES MELLITUS [None]
  - WEIGHT INCREASED [None]
  - HYPOALBUMINAEMIA [None]
  - INTESTINAL OBSTRUCTION [None]
  - OFF LABEL USE [None]
  - PANCREATITIS CHRONIC [None]
